FAERS Safety Report 11924978 (Version 2)
Quarter: 2016Q1

REPORT INFORMATION
  Report Type: Report from Study
  Country: DE (occurrence: DE)
  Receive Date: 20160118
  Receipt Date: 20160308
  Transmission Date: 20160526
  Serious: Yes (Other)
  Sender: FDA-Public Use
  Company Number: DE-SYMPLMED PHARMACEUTICALS-2016SYMPLMED000114

PATIENT

DRUGS (2)
  1. VIACORAM [Suspect]
     Active Substance: AMLODIPINE BESYLATE\PERINDOPRIL ARGININE
     Dosage: 1 (7MG/5MG) TABLET, QD
     Route: 048
     Dates: start: 20151215, end: 20160111
  2. VIACORAM [Suspect]
     Active Substance: AMLODIPINE BESYLATE\PERINDOPRIL ARGININE
     Indication: HYPERTENSION
     Dosage: 1 (3.5MG/2.5MG) TABLET, QD
     Route: 048
     Dates: start: 20151117, end: 20151214

REACTIONS (1)
  - Drug ineffective [Recovered/Resolved]

NARRATIVE: CASE EVENT DATE: 201511
